FAERS Safety Report 8016090-3 (Version None)
Quarter: 2011Q4

REPORT INFORMATION
  Report Type: 
  Country: None (occurrence: None)
  Receive Date: 20111230
  Receipt Date: 20111227
  Transmission Date: 20120403
  Serious: No
  Sender: FDA-Public Use
  Company Number: US-BAYER-2011-124253

PATIENT
  Sex: Male

DRUGS (1)
  1. BETASERON [Suspect]
     Indication: PRODUCT USED FOR UNKNOWN INDICATION

REACTIONS (5)
  - GAIT DISTURBANCE [None]
  - BLOOD IRON DECREASED [None]
  - PAIN IN EXTREMITY [None]
  - VITAMIN D DECREASED [None]
  - ASTHENIA [None]
